FAERS Safety Report 25059843 (Version 1)
Quarter: 2025Q1

REPORT INFORMATION
  Report Type: Spontaneous
  Country: US (occurrence: None)
  Receive Date: 20250310
  Receipt Date: 20250310
  Transmission Date: 20250408
  Serious: No
  Sender: FDA-CTU
  Company Number: None

PATIENT
  Age: 75 Year
  Sex: Female
  Weight: 106.14 kg

DRUGS (3)
  1. XELJANZ XR [Suspect]
     Active Substance: TOFACITINIB CITRATE
     Indication: Rheumatoid arthritis
     Dosage: FREQUENCY : DAILY;?
     Route: 048
     Dates: start: 202410
  2. REMICADE [Suspect]
     Active Substance: INFLIXIMAB
  3. RINVOQ [Suspect]
     Active Substance: UPADACITINIB

REACTIONS (3)
  - Skin discolouration [None]
  - Fungal infection [None]
  - Cystitis [None]
